FAERS Safety Report 23609969 (Version 1)
Quarter: 2024Q1

REPORT INFORMATION
  Report Type: Spontaneous
  Country: US (occurrence: None)
  Receive Date: 20240307
  Receipt Date: 20240307
  Transmission Date: 20240410
  Serious: Yes (Hospitalization, Disabling, Other)
  Sender: FDA-Public Use
  Company Number: None

PATIENT
  Age: 67 Year
  Sex: Male
  Weight: 102.06 kg

DRUGS (46)
  1. IBUPROFEN [Suspect]
     Active Substance: IBUPROFEN
     Indication: Product used for unknown indication
     Dates: start: 19950629
  2. PROCHLORPERAZINE [Concomitant]
     Active Substance: PROCHLORPERAZINE
  3. ONDANSETRON [Concomitant]
     Active Substance: ONDANSETRON
  4. HYDROXYZINE PAMOATE [Concomitant]
     Active Substance: HYDROXYZINE PAMOATE
  5. ESZOPICLONE [Concomitant]
     Active Substance: ESZOPICLONE
  6. TAMSULOSIN [Concomitant]
     Active Substance: TAMSULOSIN
  7. AMLODIPINE BESYLATE\OLMESARTAN MEDOXOMIL [Concomitant]
     Active Substance: AMLODIPINE BESYLATE\OLMESARTAN MEDOXOMIL
  8. TADALAFIL [Concomitant]
     Active Substance: TADALAFIL
  9. DARVOCET-N 100 [Concomitant]
     Active Substance: ACETAMINOPHEN\PROPOXYPHENE NAPSYLATE
  10. PHENERGAN [Concomitant]
     Active Substance: PROMETHAZINE HYDROCHLORIDE
  11. DEMEROL [Concomitant]
     Active Substance: MEPERIDINE HYDROCHLORIDE
  12. PfQ 10100 [Concomitant]
  13. TXE 5% [Concomitant]
  14. ATROPINE [Concomitant]
     Active Substance: ATROPINE\ATROPINE SULFATE
  15. TRUSOPT [Concomitant]
     Active Substance: DORZOLAMIDE HYDROCHLORIDE
  16. MAXITROL [Concomitant]
     Active Substance: DEXAMETHASONE\NEOMYCIN SULFATE\POLYMYXIN B SULFATE
  17. Muro [Concomitant]
  18. Alwbackkes co t [Concomitant]
  19. CIPRO [Concomitant]
     Active Substance: CIPROFLOXACIN HYDROCHLORIDE
  20. Wygesis T [Concomitant]
  21. KEFLEX [Concomitant]
     Active Substance: CEPHALEXIN
  22. GENTAMICIN [Concomitant]
     Active Substance: GENTAMICIN
  23. PRED G [Concomitant]
  24. POLYSPORIN FIRST AID ANTIBIOTIC [Concomitant]
     Active Substance: BACITRACIN\POLYMYXIN B SULFATE
  25. Orange tab for headache [Concomitant]
  26. INDOMETHACIN [Concomitant]
     Active Substance: INDOMETHACIN
  27. TRAZODONE [Concomitant]
     Active Substance: TRAZODONE HYDROCHLORIDE
  28. TIMOPTIC [Concomitant]
     Active Substance: TIMOLOL MALEATE
  29. Pred Forte ophth susp [Concomitant]
  30. HYALURONIDASE [Concomitant]
  31. BSS ophth soln [Concomitant]
  32. Ciloxano 3% ophth soln [Concomitant]
  33. Healon Springs [Concomitant]
  34. EPINEPHRINE BITARTRATE\LIDOCAINE HYDROCHLORIDE [Concomitant]
     Active Substance: EPINEPHRINE BITARTRATE\LIDOCAINE HYDROCHLORIDE
  35. MARCAINE [Concomitant]
     Active Substance: BUPIVACAINE HYDROCHLORIDE
  36. Miochol ophth soln [Concomitant]
  37. Tetracaine 0.5% ophth soln [Concomitant]
  38. Penicillin R [Concomitant]
  39. Trimeth/sulf [Concomitant]
  40. Tetracycline S [Concomitant]
  41. VANCOMYCIN [Concomitant]
     Active Substance: VANCOMYCIN
  42. Oxacillins [Concomitant]
  43. ERYTHROMYCIN [Concomitant]
     Active Substance: ERYTHROMYCIN
  44. Antibiotic org. [Concomitant]
  45. Clindamycins [Concomitant]
  46. CIPROFLOXACIN [Concomitant]
     Active Substance: CIPROFLOXACIN

REACTIONS (2)
  - Corneal graft failure [None]
  - Keratitis [None]

NARRATIVE: CASE EVENT DATE: 19950629
